FAERS Safety Report 14928839 (Version 1)
Quarter: 2018Q2

REPORT INFORMATION
  Report Type: Spontaneous
  Country: FR (occurrence: FR)
  Receive Date: 20180523
  Receipt Date: 20180523
  Transmission Date: 20180711
  Serious: Yes (Other)
  Sender: FDA-Public Use
  Company Number: FR-CELGENEUS-FRA-20180504383

PATIENT
  Age: 69 Year
  Sex: Female
  Weight: 62 kg

DRUGS (17)
  1. ORACILLINE [Concomitant]
     Active Substance: PENICILLIN V
     Indication: PROPHYLAXIS
     Route: 048
  2. UVEDOSE [Concomitant]
     Active Substance: CHOLECALCIFEROL
     Indication: PRODUCT USED FOR UNKNOWN INDICATION
     Dosage: 100 000 UI
     Route: 048
  3. CALCIDIA [Concomitant]
     Active Substance: CALCIUM CARBONATE
     Indication: CHRONIC KIDNEY DISEASE
     Dosage: 1.54 GRAM
     Route: 048
  4. NORSET [Concomitant]
     Active Substance: MIRTAZAPINE
     Indication: PRODUCT USED FOR UNKNOWN INDICATION
     Dosage: 15 MILLIGRAM
     Route: 048
  5. ARANESP [Concomitant]
     Active Substance: DARBEPOETIN ALFA
     Indication: CHRONIC KIDNEY DISEASE
     Dosage: 60 MILLIGRAM
     Route: 065
  6. EFFEXOR [Concomitant]
     Active Substance: VENLAFAXINE HYDROCHLORIDE
     Indication: PRODUCT USED FOR UNKNOWN INDICATION
     Dosage: 150 MILLIGRAM
     Route: 048
  7. IMOVANE [Concomitant]
     Active Substance: ZOPICLONE
     Indication: PRODUCT USED FOR UNKNOWN INDICATION
     Dosage: 1.5 DOSAGE FORMS
     Route: 048
  8. POMALIDOMIDE [Suspect]
     Active Substance: POMALIDOMIDE
     Indication: OFF LABEL USE
  9. ZELITREX [Concomitant]
     Active Substance: VALACYCLOVIR HYDROCHLORIDE
     Indication: PROPHYLAXIS
     Dosage: 250 MILLIGRAM
     Route: 048
  10. DEPAMIDE [Concomitant]
     Active Substance: VALPROMIDE
     Indication: PRODUCT USED FOR UNKNOWN INDICATION
     Dosage: 300 MILLIGRAM
     Route: 048
  11. LASILIX [Concomitant]
     Active Substance: FUROSEMIDE
     Indication: HYPERTENSION
     Dosage: 40 MILLIGRAM
     Route: 048
  12. PRINCI B (CYANOCOBALAMIN\PYRIDOXINE HYDROCHLORIDE\THIAMINE) [Concomitant]
     Active Substance: CYANOCOBALAMIN\PYRIDOXINE HYDROCHLORIDE\THIAMINE
     Indication: VITAMIN SUPPLEMENTATION
     Route: 048
  13. AZANTAC [Concomitant]
     Active Substance: RANITIDINE HYDROCHLORIDE
     Indication: PRODUCT USED FOR UNKNOWN INDICATION
     Dosage: 150 MILLIGRAM
     Route: 048
  14. ENDOXAN [Concomitant]
     Active Substance: CYCLOPHOSPHAMIDE
     Indication: NEPHROPATHY
     Route: 041
     Dates: start: 20170626, end: 201712
  15. LOXEN L P [Concomitant]
     Active Substance: NICARDIPINE HYDROCHLORIDE
     Indication: HYPERTENSION
     Route: 048
  16. POMALIDOMIDE [Suspect]
     Active Substance: POMALIDOMIDE
     Indication: NEPHROPATHY
     Route: 048
     Dates: start: 20171219, end: 20180424
  17. DEXAMETHASONE. [Concomitant]
     Active Substance: DEXAMETHASONE
     Indication: NEPHROPATHY
     Route: 041
     Dates: start: 20170626

REACTIONS (3)
  - Obstructive airways disorder [Not Recovered/Not Resolved]
  - Bronchiectasis [Not Recovered/Not Resolved]
  - Bronchiolitis [Not Recovered/Not Resolved]

NARRATIVE: CASE EVENT DATE: 20180129
